FAERS Safety Report 22268316 (Version 3)
Quarter: 2023Q4

REPORT INFORMATION
  Report Type: Other
  Country: DE (occurrence: None)
  Receive Date: 20230430
  Receipt Date: 20231103
  Transmission Date: 20240110
  Serious: Yes (Hospitalization)
  Sender: FDA-Public Use
  Company Number: DE-ROCHE-3340190

PATIENT
  Sex: Male

DRUGS (2)
  1. TOCILIZUMAB [Suspect]
     Active Substance: TOCILIZUMAB
     Indication: Rheumatoid arthritis
     Dosage: SUBSEQUENT DOSE ADMINISTERED ON 18/JUL/2017, 10/OCT/2017
     Route: 058
     Dates: start: 20170413
  2. TOCILIZUMAB [Suspect]
     Active Substance: TOCILIZUMAB
     Dosage: SUBSEQUENT DOSE ADMINISTERED ON 15/NOV/2018, 14/MAY/2019, 19/NOV/2019, 25/MAY/2020, 23/NOV/2020, 26/
     Route: 058
     Dates: start: 20180518

REACTIONS (1)
  - Osteoarthritis [Recovered/Resolved]

NARRATIVE: CASE EVENT DATE: 20221123
